FAERS Safety Report 6399849-8 (Version None)
Quarter: 2009Q4

REPORT INFORMATION
  Report Type: 
  Country: None (occurrence: None)
  Receive Date: 20091014
  Receipt Date: 20091005
  Transmission Date: 20100525
  Serious: Yes (Other)
  Sender: FDA-Public Use
  Company Number: CL-PFIZER INC-2009278964

PATIENT

DRUGS (1)
  1. DEPO-PRODASONE [Suspect]
     Dosage: UNK
     Dates: end: 20090601

REACTIONS (2)
  - AMENORRHOEA [None]
  - ENDOMETRIAL ATROPHY [None]
